FAERS Safety Report 6794869-3 (Version None)
Quarter: 2010Q2

REPORT INFORMATION
  Report Type: 
  Country: None (occurrence: None)
  Receive Date: 20100624
  Receipt Date: 20100624
  Transmission Date: 20101027
  Serious: Yes (Other)
  Sender: FDA-Public Use
  Company Number: None

PATIENT
  Age: 68 Year
  Sex: Female
  Weight: 53.0709 kg

DRUGS (2)
  1. AMBIEN [Suspect]
     Indication: INSOMNIA
     Dosage: 10 MG 1-NIGHTIME
     Dates: start: 20091001, end: 20100515
  2. AMBIEN [Suspect]
     Indication: STRESS
     Dosage: 10 MG 1-NIGHTIME
     Dates: start: 20091001, end: 20100515

REACTIONS (1)
  - UNEVALUABLE EVENT [None]
